FAERS Safety Report 6159300-X (Version None)
Quarter: 2009Q2

REPORT INFORMATION
  Report Type: 
  Country: None (occurrence: None)
  Receive Date: 20090417
  Receipt Date: 20090409
  Transmission Date: 20091009
  Serious: Yes (Death, Life-Threatening, Hospitalization, Other)
  Sender: FDA-Public Use
  Company Number: JP-ABBOTT-09P-087-0565916-00

PATIENT
  Sex: Female
  Weight: 60 kg

DRUGS (20)
  1. HUMIRA [Suspect]
     Indication: RHEUMATOID ARTHRITIS
     Route: 058
     Dates: start: 20080808, end: 20090123
  2. METHOTREXATE [Concomitant]
     Indication: RHEUMATOID ARTHRITIS
     Route: 048
  3. SODIUM AUROTHIOMALATE [Concomitant]
     Indication: RHEUMATOID ARTHRITIS
     Dates: end: 20080919
  4. NABUMETONE [Concomitant]
     Indication: RHEUMATOID ARTHRITIS
  5. FAMOTIDINE [Concomitant]
     Indication: GASTRITIS PROPHYLAXIS
  6. KETOPROFEN [Concomitant]
     Indication: RHEUMATOID ARTHRITIS
  7. ALENDRONATE SODIUM [Concomitant]
     Indication: DRUG USE FOR UNKNOWN INDICATION
  8. PREDNISOLONE [Concomitant]
     Indication: RHEUMATOID ARTHRITIS
     Route: 048
     Dates: end: 20081031
  9. PREDNISOLONE [Concomitant]
     Route: 048
     Dates: start: 20081101
  10. TRIAMCINOLONE ACETONIDE [Concomitant]
     Indication: RHEUMATOID ARTHRITIS
     Route: 013
     Dates: start: 20081226, end: 20081226
  11. FOLIC ACID [Concomitant]
     Indication: PROPHYLAXIS
  12. SULPIRIDE [Concomitant]
     Indication: GASTRITIS PROPHYLAXIS
  13. INDOMETHACIN [Concomitant]
     Indication: RHEUMATOID ARTHRITIS
  14. FRADIOMYCIN SULFATE BETAMETHASONE SODIUM PHOSPHATE [Concomitant]
     Indication: DRUG USE FOR UNKNOWN INDICATION
  15. ATORVASTATIN CALCIUM HYDRATE [Concomitant]
     Indication: DRUG USE FOR UNKNOWN INDICATION
     Dates: start: 20081003
  16. ASPIRIN [Concomitant]
     Indication: DRUG USE FOR UNKNOWN INDICATION
     Dates: start: 20081114, end: 20090124
  17. DICLOFENAC SODIUM [Concomitant]
     Indication: RHEUMATOID ARTHRITIS
     Dates: start: 20081226
  18. SODIUM HYALURONATE [Concomitant]
     Indication: RHEUMATOID ARTHRITIS
     Dosage: ROUTE: IR
     Dates: start: 20081226, end: 20081226
  19. VERAPAMIL HYDROCHLORIDE [Concomitant]
     Indication: DRUG USE FOR UNKNOWN INDICATION
     Dates: start: 20081114
  20. FLURBIPROFEN [Concomitant]
     Indication: RHEUMATOID ARTHRITIS
     Route: 061
     Dates: start: 20081226

REACTIONS (10)
  - ARTERIAL HAEMORRHAGE [None]
  - BRAIN HERNIATION [None]
  - BRAIN OEDEMA [None]
  - CEREBRAL INFARCTION [None]
  - DISSEMINATED INTRAVASCULAR COAGULATION [None]
  - HYPOVOLAEMIC SHOCK [None]
  - RESPIRATORY ARREST [None]
  - SICK SINUS SYNDROME [None]
  - SUBARACHNOID HAEMORRHAGE [None]
  - VISUAL IMPAIRMENT [None]
